FAERS Safety Report 10746594 (Version 4)
Quarter: 2015Q2

REPORT INFORMATION
  Report Type: Spontaneous
  Country: JP (occurrence: JP)
  Receive Date: 20150128
  Receipt Date: 20150424
  Transmission Date: 20150821
  Serious: Yes (Disabling, Other)
  Sender: FDA-Public Use
  Company Number: JP-GLAXOSMITHKLINE-JP2015JPN006687

PATIENT
  Age: 66 Year
  Sex: Male
  Weight: 73 kg

DRUGS (4)
  1. MICARDIS [Concomitant]
     Active Substance: TELMISARTAN
     Dosage: 40 MG, QD
  2. LAMICTAL [Suspect]
     Active Substance: LAMOTRIGINE
     Dosage: 37.5 MG, BID
     Route: 048
     Dates: end: 20150119
  3. LAMICTAL [Suspect]
     Active Substance: LAMOTRIGINE
     Dosage: UNK, BID
     Route: 048
     Dates: start: 20141214
  4. LAMICTAL [Suspect]
     Active Substance: LAMOTRIGINE
     Indication: EPILEPSY
     Dosage: 25 MG, BID
     Route: 048
     Dates: start: 20140929, end: 20141213

REACTIONS (11)
  - Pruritus [Recovering/Resolving]
  - Eczema asteatotic [Unknown]
  - Pyrexia [Recovered/Resolved]
  - Oxygen saturation decreased [Unknown]
  - Hyperhidrosis [Unknown]
  - Interstitial lung disease [Recovering/Resolving]
  - Chest X-ray abnormal [Unknown]
  - Bronchiectasis [Unknown]
  - Cough [Recovered/Resolved]
  - Rash erythematous [Recovering/Resolving]
  - Computerised tomogram thorax abnormal [Unknown]

NARRATIVE: CASE EVENT DATE: 20141208
